FAERS Safety Report 11584864 (Version 1)
Quarter: 2015Q4

REPORT INFORMATION
  Report Type: Report from Study
  Country: JP (occurrence: JP)
  Receive Date: 20151001
  Receipt Date: 20151001
  Transmission Date: 20160304
  Serious: Yes (Death, Hospitalization, Other)
  Sender: FDA-Public Use
  Company Number: JP-ASTELLAS-2002JP005556

PATIENT
  Age: 11 Year
  Sex: Male
  Weight: 39 kg

DRUGS (13)
  1. DEPAKENE [Concomitant]
     Active Substance: VALPROIC ACID
     Indication: ENCEPHALOPATHY
     Dosage: UNK UNK, UNKNOWN FREQ.
     Route: 065
  2. TACROLIMUS. [Suspect]
     Active Substance: TACROLIMUS
     Route: 041
     Dates: start: 20020614, end: 20020616
  3. TACROLIMUS. [Suspect]
     Active Substance: TACROLIMUS
     Dosage: 0.825 MG, ONCE DAILY
     Route: 041
     Dates: start: 20020617, end: 20020621
  4. METHYLPREDNISOLONE. [Concomitant]
     Active Substance: METHYLPREDNISOLONE
     Indication: GRAFT VERSUS HOST DISEASE
     Route: 065
     Dates: start: 20020622, end: 20020624
  5. BUSULFAN [Concomitant]
     Active Substance: BUSULFAN
     Indication: TRANSPLANT
     Dosage: UNK UNK, UNKNOWN FREQ.
     Route: 065
  6. CARBENIN [Concomitant]
     Active Substance: BETAMIPRON\PANIPENEM
     Indication: SEPSIS
     Route: 041
     Dates: start: 20020630, end: 20020704
  7. TACROLIMUS. [Suspect]
     Active Substance: TACROLIMUS
     Indication: GRAFT VERSUS HOST DISEASE
     Route: 041
     Dates: start: 20020612, end: 20020613
  8. TACROLIMUS. [Suspect]
     Active Substance: TACROLIMUS
     Route: 041
     Dates: start: 20020622, end: 20020703
  9. METHYLPREDNISOLONE. [Concomitant]
     Active Substance: METHYLPREDNISOLONE
     Route: 065
     Dates: start: 20020629, end: 20020629
  10. METHYLPREDNISOLONE. [Concomitant]
     Active Substance: METHYLPREDNISOLONE
     Route: 065
     Dates: start: 20020703, end: 20020703
  11. METHOTREXATE [Concomitant]
     Active Substance: METHOTREXATE
     Indication: GRAFT VERSUS HOST DISEASE
     Dosage: UNK UNK, UNKNOWN FREQ.
     Route: 065
  12. CYCLOPHOSPHAMIDE. [Concomitant]
     Active Substance: CYCLOPHOSPHAMIDE
     Indication: TRANSPLANT
     Dosage: UNK UNK, UNKNOWN FREQ.
     Route: 065
  13. METHYLPREDNISOLONE. [Concomitant]
     Active Substance: METHYLPREDNISOLONE
     Indication: GRAFT VERSUS HOST DISEASE
     Route: 041
     Dates: start: 20020622

REACTIONS (3)
  - Encephalopathy [Recovering/Resolving]
  - Hyponatraemia [Recovering/Resolving]
  - Pneumonia pseudomonal [Fatal]

NARRATIVE: CASE EVENT DATE: 20020701
